FAERS Safety Report 6900751-0 (Version None)
Quarter: 2010Q3

REPORT INFORMATION
  Report Type: 
  Country: None (occurrence: None)
  Receive Date: 20100730
  Receipt Date: 20100719
  Transmission Date: 20110219
  Serious: Yes (Other)
  Sender: FDA-Public Use
  Company Number: HR-1182686

PATIENT
  Age: 73 Year
  Sex: Female

DRUGS (1)
  1. AZOPT [Suspect]
     Route: 047

REACTIONS (3)
  - EYELID OEDEMA [None]
  - LACRIMATION INCREASED [None]
  - VERTIGO [None]
